FAERS Safety Report 16361884 (Version 4)
Quarter: 2020Q1

REPORT INFORMATION
  Report Type: Spontaneous
  Country: US (occurrence: US)
  Receive Date: 20190528
  Receipt Date: 20200310
  Transmission Date: 20200409
  Serious: Yes (Other)
  Sender: FDA-Public Use
  Company Number: US-PFIZER INC-2019225184

PATIENT
  Age: 37 Year
  Sex: Male

DRUGS (1)
  1. DILANTIN [Suspect]
     Active Substance: PHENYTOIN
     Indication: SEIZURE
     Dosage: UNK
     Route: 048

REACTIONS (8)
  - Mental status changes [Unknown]
  - Fall [Unknown]
  - Dizziness [Unknown]
  - Cerebellar atrophy [Unknown]
  - Confusional state [Unknown]
  - Headache [Recovering/Resolving]
  - Ataxia [Recovered/Resolved]
  - Drug hypersensitivity [Unknown]
